FAERS Safety Report 10088779 (Version 1)
Quarter: 2014Q2

REPORT INFORMATION
  Report Type: Spontaneous
  Country: US (occurrence: US)
  Receive Date: 20140421
  Receipt Date: 20140421
  Transmission Date: 20141212
  Serious: No
  Sender: FDA-Public Use
  Company Number: US-BIOGENIDEC-2014BI034044

PATIENT
  Sex: Female

DRUGS (2)
  1. TECFIDERA [Suspect]
     Indication: MULTIPLE SCLEROSIS
     Route: 048
     Dates: start: 201308
  2. SOLU-MEDROL [Concomitant]

REACTIONS (7)
  - Flatulence [Unknown]
  - Hemiparesis [Unknown]
  - Hypoaesthesia [Unknown]
  - Speech disorder [Unknown]
  - Nuclear magnetic resonance imaging abnormal [Unknown]
  - Abdominal distension [Unknown]
  - Multiple sclerosis relapse [Unknown]
